FAERS Safety Report 9403754 (Version 2)
Quarter: 2013Q3

REPORT INFORMATION
  Report Type: Spontaneous
  Country: TR (occurrence: TR)
  Receive Date: 20130717
  Receipt Date: 20130801
  Transmission Date: 20140515
  Serious: Yes (Death, Other)
  Sender: FDA-Public Use
  Company Number: TR-RANBAXY-2013RR-71102

PATIENT
  Age: 17 Year
  Sex: Female

DRUGS (3)
  1. METFORMINE [Suspect]
     Indication: PRODUCT USED FOR UNKNOWN INDICATION
     Dosage: 75 PILLS OF 1000MG
     Route: 048
  2. RUPATADINE [Interacting]
     Indication: PRODUCT USED FOR UNKNOWN INDICATION
     Dosage: 20 PILLS OF 10MG
     Route: 048
  3. AMITRIPTYLINE [Suspect]
     Indication: MAJOR DEPRESSION
     Dosage: 10 MG/DAY
     Route: 065

REACTIONS (5)
  - Lactic acidosis [Not Recovered/Not Resolved]
  - Ventricular tachycardia [Fatal]
  - Intentional overdose [Fatal]
  - Suicide attempt [Fatal]
  - Drug interaction [Unknown]
